FAERS Safety Report 5625429-5 (Version None)
Quarter: 2008Q1

REPORT INFORMATION
  Report Type: 
  Country: None (occurrence: None)
  Receive Date: 20080211
  Receipt Date: 20080130
  Transmission Date: 20080703
  Serious: Yes (Other)
  Sender: FDA-Public Use
  Company Number: A-US2008-19053

PATIENT
  Age: 17 Year
  Sex: Male
  Weight: 52.8 kg

DRUGS (5)
  1. TRACLEER [Suspect]
     Indication: PULMONARY HYPERTENSION
     Dosage: 125 MG,BID,ORAL; 62.5 MG,BID,ORAL
     Route: 048
     Dates: start: 20030401, end: 20040301
  2. TRACLEER [Suspect]
     Indication: PULMONARY HYPERTENSION
     Dosage: 125 MG,BID,ORAL; 62.5 MG,BID,ORAL
     Route: 048
     Dates: start: 20040301
  3. SILDENAFIL (SILDENAFIL) TABLET [Concomitant]
  4. LASIX [Concomitant]
  5. ASPIRIN [Concomitant]

REACTIONS (2)
  - INTERMEDIATE UVEITIS [None]
  - VITREOUS HAEMORRHAGE [None]
